FAERS Safety Report 10970057 (Version 1)
Quarter: 2015Q1

REPORT INFORMATION
  Report Type: Spontaneous
  Country: US (occurrence: None)
  Receive Date: 20150226
  Receipt Date: 20150226
  Transmission Date: 20150721
  Serious: No
  Sender: FDA-Public Use
  Company Number: TPA2009A01348

PATIENT
  Age: 63 Year
  Sex: Male

DRUGS (8)
  1. COLCHICINE. [Concomitant]
     Active Substance: COLCHICINE
  2. ADVAIR (FLUTICASONE PROPIONATE, SALEMTEROL XINAFOATE) [Concomitant]
  3. ULORIC [Suspect]
     Active Substance: FEBUXOSTAT
     Indication: BLOOD URIC ACID INCREASED
     Route: 048
     Dates: start: 200905
  4. HYDROCODONE [Concomitant]
     Active Substance: HYDROCODONE
  5. CLONIDINE. [Concomitant]
     Active Substance: CLONIDINE
  6. MEDROL (METHYLPREDNISONE) [Concomitant]
  7. LOTEL (AMLODIPINE, BENAZEPRIL HYDROCHLORIDE) [Concomitant]
  8. METROPROLOL [Concomitant]
     Active Substance: METOPROLOL

REACTIONS (1)
  - Burning sensation [None]
